FAERS Safety Report 14236397 (Version 1)
Quarter: 2017Q4

REPORT INFORMATION
  Report Type: Spontaneous
  Country: US (occurrence: US)
  Receive Date: 20171129
  Receipt Date: 20171129
  Transmission Date: 20180321
  Serious: Yes (Other)
  Sender: FDA-Public Use
  Company Number: US-DSJP-DSU-2017-144499

PATIENT

DRUGS (1)
  1. BENICAR [Suspect]
     Active Substance: OLMESARTAN MEDOXOMIL
     Indication: PRODUCT USED FOR UNKNOWN INDICATION
     Dosage: 40 MG, QAM
     Route: 048
     Dates: start: 20141229

REACTIONS (5)
  - Diarrhoea [Unknown]
  - Large intestine polyp [Unknown]
  - Cholecystitis chronic [Recovered/Resolved]
  - Constipation [Unknown]
  - Gastric polyps [Unknown]

NARRATIVE: CASE EVENT DATE: 20160516
